FAERS Safety Report 8731051 (Version 2)
Quarter: 2012Q4

REPORT INFORMATION
  Report Type: 
  Country: DE (occurrence: DE)
  Receive Date: 20120820
  Receipt Date: 20120829
  Transmission Date: 20130627
  Serious: Yes (Hospitalization)
  Sender: FDA-Public Use
  Company Number: DE-AMGEN-DEUSP2012051776

PATIENT
  Sex: Female

DRUGS (6)
  1. NEULASTA [Suspect]
     Indication: CHEMOTHERAPY
  2. RITUXIMAB [Concomitant]
     Indication: NON-HODGKIN^S LYMPHOMA
     Dosage: UNK UNK, q3wk
  3. CYCLOPHOSPHAMID [Concomitant]
     Indication: NON-HODGKIN^S LYMPHOMA
     Dosage: UNK UNK, q3wk
  4. DOXORUBICIN [Concomitant]
     Indication: NON-HODGKIN^S LYMPHOMA
     Dosage: UNK UNK, q3wk
  5. VINCRISTIN [Concomitant]
     Indication: NON-HODGKIN^S LYMPHOMA
     Dosage: UNK UNK, q3wk
  6. PREDNISON [Concomitant]
     Indication: NON-HODGKIN^S LYMPHOMA
     Dosage: UNK UNK, q3wk

REACTIONS (3)
  - Febrile neutropenia [Unknown]
  - Lymphopenia [Unknown]
  - Drug ineffective [Unknown]
